FAERS Safety Report 25628483 (Version 2)
Quarter: 2025Q3

REPORT INFORMATION
  Report Type: Spontaneous
  Country: JP (occurrence: JP)
  Receive Date: 20250731
  Receipt Date: 20250805
  Transmission Date: 20251021
  Serious: Yes (Hospitalization, Other)
  Sender: ALEXION PHARMACEUTICALS
  Company Number: JP-ASTRAZENECA-202007GLO000005JP

PATIENT
  Age: 69 Year
  Sex: Female

DRUGS (1)
  1. OSIMERTINIB [Suspect]
     Active Substance: OSIMERTINIB
     Indication: Lung adenocarcinoma
     Route: 065

REACTIONS (5)
  - Colitis ulcerative [Recovered/Resolved]
  - Decreased appetite [Unknown]
  - Hypotension [Unknown]
  - Anaemia [Recovering/Resolving]
  - Renal failure [Recovering/Resolving]
